FAERS Safety Report 12898144 (Version 1)
Quarter: 2016Q4

REPORT INFORMATION
  Report Type: Spontaneous
  Country: US (occurrence: US)
  Receive Date: 20161028
  Receipt Date: 20161028
  Transmission Date: 20170207
  Serious: No
  Sender: FDA-Public Use
  Company Number: None

PATIENT
  Age: 51 Year
  Sex: Female

DRUGS (1)
  1. BOTOX [Suspect]
     Active Substance: ONABOTULINUMTOXINA
     Indication: MIGRAINE
     Dosage: 155 UNITS; EVERY 3 MONTHS; INTRAMUSCULARLY
     Route: 030
     Dates: start: 201602, end: 20160708

REACTIONS (8)
  - Visual acuity reduced [None]
  - Eye infection [None]
  - Photophobia [None]
  - Depressed mood [None]
  - Dry eye [None]
  - Blepharospasm [None]
  - Eyelid ptosis [None]
  - Anxiety [None]

NARRATIVE: CASE EVENT DATE: 20160708
